FAERS Safety Report 5310034-0 (Version None)
Quarter: 2007Q2

REPORT INFORMATION
  Report Type: 
  Country: None (occurrence: None)
  Receive Date: 20070427
  Receipt Date: 20070419
  Transmission Date: 20071010
  Serious: Yes (Congenital Anomaly)
  Sender: FDA-Public Use
  Company Number: US-GLAXOSMITHKLINE-A0648778A

PATIENT
  Age: 0 Year
  Sex: Female

DRUGS (1)
  1. PAXIL [Suspect]
     Indication: DRUG USE FOR UNKNOWN INDICATION

REACTIONS (4)
  - ASPLENIA [None]
  - COARCTATION OF THE AORTA [None]
  - DRUG EXPOSURE DURING PREGNANCY [None]
  - SITUS INVERSUS [None]
